FAERS Safety Report 8583401-X (Version None)
Quarter: 2012Q3

REPORT INFORMATION
  Report Type: 
  Country: None (occurrence: None)
  Receive Date: 20120809
  Receipt Date: 20120726
  Transmission Date: 20120928
  Serious: Yes (Other)
  Sender: FDA-Public Use
  Company Number: TR-WATSON-2012-12036

PATIENT
  Age: 37 Year
  Sex: Female

DRUGS (2)
  1. METOCLOPRAMIDE INJECTION [Suspect]
     Indication: VOMITING
     Dosage: ORAL
     Route: 048
  2. METOCLOPRAMIDE INJECTION [Suspect]
     Dosage: IV
     Route: 042

REACTIONS (4)
  - MUSCLE SPASMS [None]
  - PARAPARESIS [None]
  - DIARRHOEA [None]
  - SENSORY LOSS [None]
